FAERS Safety Report 8777858 (Version 4)
Quarter: 2013Q3

REPORT INFORMATION
  Report Type: Report from Study
  Country: SE (occurrence: SE)
  Receive Date: 20120911
  Receipt Date: 20130920
  Transmission Date: 20140515
  Serious: Yes (Hospitalization, Other)
  Sender: FDA-Public Use
  Company Number: PHHO2012SE012692

PATIENT
  Sex: 0

DRUGS (15)
  1. LETROZOLE [Suspect]
     Indication: BREAST CANCER
     Dosage: 2.5 MG, QD
     Route: 048
     Dates: start: 20120426, end: 20120426
  2. LETROZOLE [Interacting]
     Dosage: 2.5 MG, QD
     Route: 048
     Dates: start: 20120507
  3. BEHEPAN [Concomitant]
     Indication: VITAMIN B12 DEFICIENCY
     Dosage: UNK
     Dates: start: 20120113
  4. FOLACIN [Concomitant]
     Indication: FOLATE DEFICIENCY
     Dosage: UNK
     Dates: start: 20100113
  5. TENORMIN [Concomitant]
     Indication: HYPERTENSION
     Dosage: UNK
     Dates: start: 20091211
  6. NORMORIX MITE [Concomitant]
     Indication: HYPERTENSION
     Dosage: UNK
     Dates: start: 20110811
  7. LEVAXIN [Concomitant]
     Indication: HYPOTHYROIDISM
     Dosage: UNK
     Dates: start: 20100113
  8. TRYPTIZOL [Concomitant]
     Indication: NEURALGIA
     Dosage: UNK
     Dates: start: 20120405
  9. PRIMPERAN [Concomitant]
     Indication: NAUSEA
     Dosage: UNK
     Dates: start: 20120429
  10. ANDOLEX [Concomitant]
     Indication: STOMATITIS
     Dosage: UNK
     Dates: start: 20120510
  11. XYLOCAIN [Concomitant]
     Indication: ORAL PAIN
     Dosage: UNK
     Dates: start: 20120510
  12. DIMOR [Concomitant]
     Indication: DIARRHOEA
     Dosage: UNK
     Dates: start: 20120524
  13. LORATADINE [Concomitant]
     Dosage: UNK
     Dates: start: 20120607, end: 20120609
  14. CLAFORAN [Concomitant]
     Dosage: UNK
     Dates: start: 20120613, end: 20120614
  15. CAPHOSOL [Concomitant]
     Dosage: UNK
     Dates: start: 20120524, end: 20120611

REACTIONS (5)
  - Stomatitis [Recovered/Resolved]
  - Rash maculo-papular [Recovered/Resolved]
  - General physical health deterioration [Recovered/Resolved]
  - Dehydration [Recovered/Resolved]
  - Pneumocystis jirovecii pneumonia [Recovered/Resolved]
